FAERS Safety Report 19597608 (Version 1)
Quarter: 2021Q3

REPORT INFORMATION
  Report Type: Report from Study
  Country: US (occurrence: US)
  Receive Date: 20210723
  Receipt Date: 20210723
  Transmission Date: 20211014
  Serious: Yes (Other)
  Sender: FDA-Public Use
  Company Number: US-ASTRAZENECA-2021A626247

PATIENT
  Age: 63 Year
  Sex: Female
  Weight: 64.4 kg

DRUGS (10)
  1. ZINC. [Concomitant]
     Active Substance: ZINC
  2. MAGNESIUM [Concomitant]
     Active Substance: MAGNESIUM
  3. VITAMIN D [Concomitant]
     Active Substance: VITAMIN D NOS
  4. IBUPROFEN. [Concomitant]
     Active Substance: IBUPROFEN
  5. MICRO C ENHANCED WITH ROSEHIP [Concomitant]
  6. LYNPARZA [Suspect]
     Active Substance: OLAPARIB
     Indication: ILL-DEFINED DISORDER
     Route: 048
     Dates: start: 20200602
  7. VITAMIN B12 [Concomitant]
     Active Substance: CYANOCOBALAMIN
  8. GLYCINATE [Concomitant]
  9. GRAPESEED EXTRACT [Concomitant]
  10. BENADRYL [Concomitant]
     Active Substance: DIPHENHYDRAMINE HYDROCHLORIDE

REACTIONS (7)
  - Product dose omission issue [Unknown]
  - Malignant peritoneal neoplasm [Unknown]
  - Poor quality sleep [Unknown]
  - Pain [Unknown]
  - Aphonia [Unknown]
  - Chest discomfort [Recovered/Resolved]
  - Periarthritis [Not Recovered/Not Resolved]

NARRATIVE: CASE EVENT DATE: 2020
